FAERS Safety Report 4570177-6 (Version None)
Quarter: 2005Q1

REPORT INFORMATION
  Report Type: 
  Country: None (occurrence: None)
  Receive Date: 20050202
  Receipt Date: 20041012
  Transmission Date: 20050727
  Serious: Yes (Hospitalization)
  Sender: FDA-Public Use
  Company Number: A02200403145

PATIENT
  Age: 78 Year
  Sex: Male

DRUGS (5)
  1. PLAVIX [Suspect]
     Indication: ARTERIOPATHIC DISEASE
     Dosage: 75 MG OD
     Route: 048
     Dates: start: 20030101, end: 20040930
  2. FONZYLANE (BUFLOMEDIL HYDROCHLORIDE) [Concomitant]
  3. TANAKAN (GINKGO BILOBA EXTRACT) [Concomitant]
  4. ATACAND [Concomitant]
  5. LESCOL [Concomitant]

REACTIONS (5)
  - FALL [None]
  - FEBRILE NEUTROPENIA [None]
  - GENERAL PHYSICAL HEALTH DETERIORATION [None]
  - INFLAMMATION [None]
  - LEUKOPENIA [None]
